FAERS Safety Report 18962900 (Version 1)
Quarter: 2021Q1

REPORT INFORMATION
  Report Type: Spontaneous
  Country: US (occurrence: US)
  Receive Date: 20210303
  Receipt Date: 20210303
  Transmission Date: 20210420
  Serious: Yes (Death)
  Sender: FDA-Public Use
  Company Number: US-CELGENEUS-USA-20210300689

PATIENT
  Age: 83 Year
  Sex: Male

DRUGS (3)
  1. REVLIMID [Suspect]
     Active Substance: LENALIDOMIDE
     Dosage: 10 MILLIGRAM
     Route: 048
     Dates: start: 202006
  2. REVLIMID [Suspect]
     Active Substance: LENALIDOMIDE
     Indication: PLASMA CELL MYELOMA
     Dosage: 25 MILLIGRAM
     Route: 048
     Dates: start: 200911
  3. REVLIMID [Suspect]
     Active Substance: LENALIDOMIDE
     Dosage: 15?25MG
     Route: 048
     Dates: start: 201311

REACTIONS (1)
  - Death [Fatal]

NARRATIVE: CASE EVENT DATE: 20210225
